FAERS Safety Report 7480010-0 (Version None)
Quarter: 2011Q2

REPORT INFORMATION
  Report Type: 
  Country: None (occurrence: None)
  Receive Date: 20110516
  Receipt Date: 20110509
  Transmission Date: 20111010
  Serious: Yes (Hospitalization)
  Sender: FDA-Public Use
  Company Number: 2008BI003217

PATIENT
  Age: 53 Year
  Sex: Female

DRUGS (1)
  1. AVONEX [Suspect]
     Indication: MULTIPLE SCLEROSIS
     Route: 030
     Dates: start: 20040928

REACTIONS (5)
  - HIP FRACTURE [None]
  - FEMUR FRACTURE [None]
  - INFLUENZA LIKE ILLNESS [None]
  - FALL [None]
  - GAIT DISTURBANCE [None]
